FAERS Safety Report 25247214 (Version 1)
Quarter: 2025Q2

REPORT INFORMATION
  Report Type: Spontaneous
  Country: US (occurrence: US)
  Receive Date: 20250428
  Receipt Date: 20250428
  Transmission Date: 20250716
  Serious: Yes (Death)
  Sender: JUBILANT
  Company Number: US-JUBILANT CADISTA PHARMACEUTICALS-2025JUB00045

PATIENT
  Age: 45 Year
  Sex: Male

DRUGS (7)
  1. PREDNISONE [Suspect]
     Active Substance: PREDNISONE
     Indication: Colitis ulcerative
  2. ETOPOSIDE [Suspect]
     Active Substance: ETOPOSIDE
     Indication: Colitis ulcerative
  3. VINCRISTINE [Suspect]
     Active Substance: VINCRISTINE
     Indication: Colitis ulcerative
  4. CYCLOPHOSPHAMIDE [Suspect]
     Active Substance: CYCLOPHOSPHAMIDE
     Indication: Colitis ulcerative
  5. DOXORUBICIN HYDROCHLORIDE [Suspect]
     Active Substance: DOXORUBICIN HYDROCHLORIDE
     Indication: Colitis ulcerative
  6. USTEKINUMAB [Concomitant]
     Active Substance: USTEKINUMAB
  7. BUDESONIDE [Concomitant]
     Active Substance: BUDESONIDE

REACTIONS (2)
  - Plasmablastic lymphoma [Fatal]
  - Disease recurrence [Fatal]
